FAERS Safety Report 19246759 (Version 1)
Quarter: 2021Q2

REPORT INFORMATION
  Report Type: Spontaneous
  Country: US (occurrence: US)
  Receive Date: 20210512
  Receipt Date: 20210512
  Transmission Date: 20210717
  Serious: Yes (Other)
  Sender: FDA-Public Use
  Company Number: US-SUN PHARMACEUTICAL INDUSTRIES LTD-2021R1-296040

PATIENT
  Age: 60 Year
  Sex: Female

DRUGS (2)
  1. CISPLATIN. [Suspect]
     Active Substance: CISPLATIN
     Indication: BLADDER CANCER
     Dosage: 2 CYCLES, 70 MG/M2 DAY 1 OF EVERY 3 WEEKS CYCLES
     Route: 065
     Dates: start: 20040831
  2. GEMCITABINE. [Suspect]
     Active Substance: GEMCITABINE
     Indication: BLADDER CANCER
     Dosage: 2 CYCLES, 1000 MG/M2 DAYS 1 AND 8 OF EVERY 3 WEEKS CYCLES
     Route: 065
     Dates: start: 20040831

REACTIONS (4)
  - Angioedema [Unknown]
  - Nausea [Unknown]
  - Phobia [Unknown]
  - Vomiting [Unknown]
